FAERS Safety Report 6559740-0 (Version None)
Quarter: 2010Q1

REPORT INFORMATION
  Report Type: 
  Country: None (occurrence: None)
  Receive Date: 20100129
  Receipt Date: 20090908
  Transmission Date: 20100710
  Serious: No
  Sender: FDA-Public Use
  Company Number: US-ABBOTT-09P-163-0597049-00

PATIENT
  Sex: Female
  Weight: 72.64 kg

DRUGS (3)
  1. HUMIRA [Suspect]
     Indication: RHEUMATOID ARTHRITIS
     Route: 048
     Dates: start: 20090823
  2. DICLOFENAC [Concomitant]
     Indication: INFLAMMATION
  3. TYLENOL-500 [Concomitant]
     Indication: PAIN

REACTIONS (3)
  - HEADACHE [None]
  - INJECTION SITE PAIN [None]
  - NASOPHARYNGITIS [None]
